FAERS Safety Report 4352724-2 (Version None)
Quarter: 2004Q2

REPORT INFORMATION
  Report Type: 
  Country: None (occurrence: None)
  Receive Date: 20040504
  Receipt Date: 20040426
  Transmission Date: 20050107
  Serious: Yes (Death)
  Sender: FDA-Public Use
  Company Number: 04-03-0377

PATIENT
  Age: 72 Year
  Sex: Female
  Weight: 56.8 kg

DRUGS (6)
  1. COMPAZINE [Suspect]
     Indication: ILL-DEFINED DISORDER
  2. CLOZAPINE [Suspect]
     Indication: SCHIZOPHRENIA, UNDIFFERENTIATED TYPE
     Dosage: 200MG AT NIGHT
     Route: 048
     Dates: start: 20030903, end: 20040101
  3. RITALIN [Suspect]
     Indication: SOMNOLENCE
     Dosage: 20MG TWICE PER DAY
     Route: 048
     Dates: start: 19870101
  4. PERCOCET [Suspect]
  5. PAXIL CR [Concomitant]
     Indication: DEPRESSION
     Route: 048
     Dates: start: 19970101
  6. ATIVAN [Concomitant]
     Indication: ANXIETY
     Dosage: 1MG THREE TIMES PER DAY
     Route: 048
     Dates: start: 20000101

REACTIONS (1)
  - DEATH [None]
